FAERS Safety Report 13865854 (Version 2)
Quarter: 2017Q3

REPORT INFORMATION
  Report Type: Report from Study
  Country: CL (occurrence: CL)
  Receive Date: 20170814
  Receipt Date: 20170829
  Transmission Date: 20171127
  Serious: Yes (Disabling)
  Sender: FDA-Public Use
  Company Number: PHHY2016CL095414

PATIENT
  Sex: Male
  Weight: 88 kg

DRUGS (1)
  1. COSENTYX [Suspect]
     Active Substance: SECUKINUMAB
     Indication: PSORIASIS
     Dosage: 300 MG, QMO
     Route: 058
     Dates: start: 20160531, end: 201611

REACTIONS (8)
  - Back pain [Unknown]
  - Arthritis [Unknown]
  - Psoriatic arthropathy [Unknown]
  - Tendonitis [Unknown]
  - Gait inability [Unknown]
  - Psoriasis [Unknown]
  - Stress [Unknown]
  - Gait disturbance [Unknown]

NARRATIVE: CASE EVENT DATE: 20160606
